FAERS Safety Report 15479626 (Version 1)
Quarter: 2018Q4

REPORT INFORMATION
  Report Type: Report from Study
  Country: US (occurrence: US)
  Receive Date: 20181009
  Receipt Date: 20181009
  Transmission Date: 20190205
  Serious: Yes (Disabling)
  Sender: FDA-Public Use
  Company Number: US-TEVA-2018-US-962650

PATIENT
  Sex: Male
  Weight: 77 kg

DRUGS (9)
  1. PRAVASTATIN. [Suspect]
     Active Substance: PRAVASTATIN
     Indication: BLOOD CHOLESTEROL INCREASED
     Route: 048
     Dates: start: 20160413
  2. GABAPENTIN. [Concomitant]
     Active Substance: GABAPENTIN
     Route: 065
     Dates: start: 20170413, end: 20170925
  3. METOPROLOL. [Concomitant]
     Active Substance: METOPROLOL
     Dates: start: 2010
  4. ENZALUTAMIDE [Suspect]
     Active Substance: ENZALUTAMIDE
     Indication: HORMONE-REFRACTORY PROSTATE CANCER
     Route: 048
     Dates: start: 20160316, end: 20180825
  5. AMLODIPINE [Concomitant]
     Active Substance: AMLODIPINE BESYLATE
     Route: 065
     Dates: start: 2010
  6. HYDRALAZINE [Concomitant]
     Active Substance: HYDRALAZINE HYDROCHLORIDE
     Route: 065
     Dates: start: 2010
  7. INDAPAMIDE. [Concomitant]
     Active Substance: INDAPAMIDE
     Route: 065
     Dates: start: 2010
  8. ASPIRIN. [Concomitant]
     Active Substance: ASPIRIN
     Route: 065
     Dates: start: 2010
  9. CALTRATE [Concomitant]
     Active Substance: CALCIUM CARBONATE
     Route: 065
     Dates: start: 2011

REACTIONS (1)
  - Optic nerve disorder [Not Recovered/Not Resolved]

NARRATIVE: CASE EVENT DATE: 20171023
